FAERS Safety Report 6509671-7 (Version None)
Quarter: 2009Q4

REPORT INFORMATION
  Report Type: 
  Country: None (occurrence: None)
  Receive Date: 20091222
  Receipt Date: 20091210
  Transmission Date: 20100525
  Serious: Yes (Other)
  Sender: FDA-Public Use
  Company Number: IE-BAYER-200910409BNE

PATIENT
  Age: 35 Year
  Sex: Female
  Weight: 61 kg

DRUGS (1)
  1. MIRENA [Suspect]
     Indication: CONTRACEPTION
     Dosage: IN-SITU FOR 4.5 YEARS
     Route: 015
     Dates: start: 20040915, end: 20090721

REACTIONS (5)
  - ANTEPARTUM HAEMORRHAGE [None]
  - DEVICE DISLOCATION [None]
  - HYPERTENSION [None]
  - PRE-ECLAMPSIA [None]
  - PREGNANCY WITH CONTRACEPTIVE DEVICE [None]
